FAERS Safety Report 5742377-0 (Version None)
Quarter: 2008Q2

REPORT INFORMATION
  Report Type: 
  Country: None (occurrence: None)
  Receive Date: 20080515
  Receipt Date: 20080507
  Transmission Date: 20081010
  Serious: Yes (Life-Threatening)
  Sender: FDA-Public Use
  Company Number: 167-21880-08040299

PATIENT
  Age: 65 Year
  Sex: Female

DRUGS (5)
  1. REVLIMID [Suspect]
     Indication: MULTIPLE MYELOMA
     Dosage: 15 MG, ALTERNATE DAYS, ORAL
     Route: 048
     Dates: start: 20080131, end: 20080221
  2. DEXAMETHASONE TAB [Concomitant]
  3. ENOXAPARIN (ENOXAPRARIN) [Concomitant]
  4. DARBEPOETIN (DARBEPOETIN ALFA) [Concomitant]
  5. BACTRIM [Concomitant]

REACTIONS (3)
  - CONDITION AGGRAVATED [None]
  - PANCYTOPENIA [None]
  - RENAL IMPAIRMENT [None]
